FAERS Safety Report 13353775 (Version 1)
Quarter: 2017Q1

REPORT INFORMATION
  Report Type: Spontaneous
  Country: US (occurrence: US)
  Receive Date: 20170320
  Receipt Date: 20170320
  Transmission Date: 20170429
  Serious: Yes (Disabling, Other)
  Sender: FDA-Public Use
  Company Number: None

PATIENT
  Age: 68 Year
  Sex: Female
  Weight: 61.2 kg

DRUGS (9)
  1. BUPRENIRPHINE NALOXONE [Suspect]
     Active Substance: BUPRENORPHINE\NALOXONE
     Indication: DRUG DEPENDENCE
  2. LACTULOSE. [Concomitant]
     Active Substance: LACTULOSE
  3. ADVAIR HFA [Concomitant]
     Active Substance: FLUTICASONE PROPIONATE\SALMETEROL XINAFOATE
  4. CELEXA [Concomitant]
     Active Substance: CITALOPRAM HYDROBROMIDE
  5. POTASSIUM [Concomitant]
     Active Substance: POTASSIUM
  6. OMEPRAZOLE. [Concomitant]
     Active Substance: OMEPRAZOLE
  7. LASIX [Concomitant]
     Active Substance: FUROSEMIDE
  8. CALCIUM [Concomitant]
     Active Substance: CALCIUM
  9. VITAMIN D [Concomitant]
     Active Substance: CHOLECALCIFEROL

REACTIONS (12)
  - Confusional state [None]
  - Agitation [None]
  - Gait disturbance [None]
  - Withdrawal syndrome [None]
  - Decreased appetite [None]
  - Pain in extremity [None]
  - Dysarthria [None]
  - Hallucination [None]
  - Delusion [None]
  - Sedation [None]
  - Restlessness [None]
  - Neuropathy peripheral [None]

NARRATIVE: CASE EVENT DATE: 20170317
